FAERS Safety Report 9056079 (Version 1)
Quarter: 2013Q1

REPORT INFORMATION
  Report Type: Spontaneous
  Country: IT (occurrence: IT)
  Receive Date: 20130205
  Receipt Date: 20130205
  Transmission Date: 20140127
  Serious: Yes (Hospitalization)
  Sender: FDA-Public Use
  Company Number: IT-ELI_LILLY_AND_COMPANY-IT201301008339

PATIENT
  Age: 67 None
  Sex: Female

DRUGS (3)
  1. PROZAC [Suspect]
     Indication: MAJOR DEPRESSION
     Dosage: 20 MG, QD
     Dates: start: 19890101, end: 20130121
  2. CARBOLITHIUM [Concomitant]
     Dosage: 150 MG, UNKNOWN
     Dates: start: 19880101, end: 20130121
  3. EUTIROX [Concomitant]
     Dosage: 125 MG, UNKNOWN

REACTIONS (1)
  - Interstitial lung disease [Not Recovered/Not Resolved]
